FAERS Safety Report 9267222 (Version 1)
Quarter: 2013Q2

REPORT INFORMATION
  Report Type: Spontaneous
  Country: US (occurrence: US)
  Receive Date: 20130502
  Receipt Date: 20130502
  Transmission Date: 20140414
  Serious: No
  Sender: FDA-Public Use
  Company Number: US-PFIZER INC-2013135350

PATIENT
  Age: 52 Year
  Sex: Female

DRUGS (3)
  1. ENBREL [Suspect]
     Indication: RHEUMATOID ARTHRITIS
     Dosage: 50 MG, QWK
     Dates: start: 20080803
  2. METHOTREXATE SODIUM [Suspect]
     Dosage: UNK
  3. HUMIRA [Suspect]
     Dosage: UNK

REACTIONS (7)
  - Arthritis [Recovering/Resolving]
  - Oedema peripheral [Recovering/Resolving]
  - Pain in extremity [Recovering/Resolving]
  - Joint swelling [Recovering/Resolving]
  - Arthralgia [Recovering/Resolving]
  - Malaise [Recovered/Resolved]
  - Abdominal discomfort [Recovered/Resolved]
